FAERS Safety Report 13453267 (Version 1)
Quarter: 2017Q2

REPORT INFORMATION
  Report Type: Spontaneous
  Country: US (occurrence: US)
  Receive Date: 20170418
  Receipt Date: 20170418
  Transmission Date: 20170830
  Serious: No
  Sender: FDA-Public Use
  Company Number: US-ALLERGAN-1658115US

PATIENT
  Age: 87 Year
  Sex: Female

DRUGS (1)
  1. LUMIGAN [Suspect]
     Active Substance: BIMATOPROST
     Indication: GLAUCOMA
     Dosage: 2 GTT, QHS
     Route: 047
     Dates: start: 201603

REACTIONS (6)
  - Foreign body sensation in eyes [Not Recovered/Not Resolved]
  - Therapeutic response decreased [Unknown]
  - Blepharal pigmentation [Not Recovered/Not Resolved]
  - Therapeutic response unexpected [Unknown]
  - Product dropper issue [Unknown]
  - Eye pain [Not Recovered/Not Resolved]
